FAERS Safety Report 20058031 (Version 1)
Quarter: 2021Q4

REPORT INFORMATION
  Report Type: Spontaneous
  Country: PL (occurrence: None)
  Receive Date: 20211111
  Receipt Date: 20211111
  Transmission Date: 20220303
  Serious: Yes (Life-Threatening, Hospitalization)
  Sender: FDA-Public Use
  Company Number: 2021A798661

PATIENT
  Age: 31 Year
  Sex: Male

DRUGS (5)
  1. QUETIAPINE FUMARATE [Suspect]
     Active Substance: QUETIAPINE FUMARATE
     Dosage: DOSE: 20 TABLETS
     Route: 048
     Dates: start: 20210225, end: 20210225
  2. CARBAMAZEPINE [Suspect]
     Active Substance: CARBAMAZEPINE
     Dosage: DOSE: 15 TABLETS
     Route: 048
     Dates: start: 20210225, end: 20210225
  3. PREGABALIN [Suspect]
     Active Substance: PREGABALIN
     Dosage: DOSE: 38 TABLETS
     Route: 048
     Dates: start: 20210225, end: 20210225
  4. VALPROATE SODIUM [Suspect]
     Active Substance: VALPROATE SODIUM
     Dosage: DOSE: 38 TABLETS
     Route: 048
     Dates: start: 20210225, end: 20210225
  5. OLANZAPINE [Suspect]
     Active Substance: OLANZAPINE
     Dosage: DOSE: 28 TABLETS
     Route: 048
     Dates: start: 20210225, end: 20210225

REACTIONS (6)
  - Coma [Unknown]
  - Suicide attempt [Unknown]
  - Pneumonia [Unknown]
  - Decubitus ulcer [Unknown]
  - Toxicity to various agents [Unknown]
  - Respiratory failure [Unknown]

NARRATIVE: CASE EVENT DATE: 20210225
